FAERS Safety Report 6944987-1 (Version None)
Quarter: 2010Q3

REPORT INFORMATION
  Report Type: 
  Country: None (occurrence: None)
  Receive Date: 20100827
  Receipt Date: 20100824
  Transmission Date: 20110219
  Serious: Yes (Life-Threatening, Hospitalization, Other)
  Sender: FDA-Public Use
  Company Number: US-BAYER-201019363BCC

PATIENT
  Age: 75 Year
  Sex: Female

DRUGS (4)
  1. ASPIRIN [Suspect]
     Indication: PRODUCT USED FOR UNKNOWN INDICATION
     Route: 048
     Dates: end: 20100801
  2. PLAVIX [Suspect]
     Indication: STENT PLACEMENT
     Dosage: TOTAL DAILY DOSE: 75 MG  UNIT DOSE: 75 MG
     Route: 048
     Dates: start: 20100706, end: 20100803
  3. PLAVIX [Suspect]
     Dosage: TOTAL DAILY DOSE: 300 MG  UNIT DOSE: 75 MG
     Route: 048
     Dates: start: 20100806, end: 20100806
  4. PLAVIX [Suspect]
     Dosage: TOTAL DAILY DOSE: 75 MG  UNIT DOSE: 75 MG
     Route: 048
     Dates: start: 20100801

REACTIONS (3)
  - CONFUSIONAL STATE [None]
  - GASTRIC ULCER HAEMORRHAGE [None]
  - GASTROINTESTINAL HAEMORRHAGE [None]
